FAERS Safety Report 5457453-X (Version None)
Quarter: 2007Q3

REPORT INFORMATION
  Report Type: 
  Country: None (occurrence: None)
  Receive Date: 20070918
  Receipt Date: 20070523
  Transmission Date: 20080115
  Serious: Yes (Disabling, Other)
  Sender: FDA-Public Use
  Company Number: US-ASTRAZENECA-2007UW04149

PATIENT
  Age: 37 Year
  Sex: Male

DRUGS (9)
  1. SEROQUEL [Suspect]
     Indication: PSYCHOTIC DISORDER
     Route: 048
     Dates: start: 20050510
  2. ZOLOFT [Concomitant]
     Indication: OBSESSIVE-COMPULSIVE DISORDER
     Route: 048
     Dates: start: 20050510
  3. ZOLOFT [Concomitant]
     Indication: TOURETTE'S DISORDER
     Route: 048
     Dates: start: 20050510
  4. ANAFRANIL [Concomitant]
     Indication: TOURETTE'S DISORDER
     Route: 048
     Dates: start: 20061130
  5. ANAFRANIL [Concomitant]
     Indication: OBSESSIVE-COMPULSIVE DISORDER
     Route: 048
     Dates: start: 20061130
  6. PEPCID [Concomitant]
  7. TYLENOL (CAPLET) [Concomitant]
  8. RISPERDAL [Concomitant]
     Indication: PSYCHOTIC DISORDER
  9. RISPERDAL [Concomitant]
     Indication: OBSESSIVE-COMPULSIVE DISORDER

REACTIONS (1)
  - CATARACT [None]
